FAERS Safety Report 6841345-5 (Version None)
Quarter: 2010Q3

REPORT INFORMATION
  Report Type: 
  Country: None (occurrence: None)
  Receive Date: 20100714
  Receipt Date: 20070822
  Transmission Date: 20110219
  Serious: No
  Sender: FDA-Public Use
  Company Number: US-PFIZER INC-2007054364

PATIENT
  Sex: Female
  Weight: 88.6 kg

DRUGS (6)
  1. CHANTIX [Suspect]
     Indication: SMOKING CESSATION THERAPY
     Dates: start: 20070515
  2. CHANTIX [Suspect]
     Indication: TOBACCO ABUSE
  3. OXYCONTIN [Concomitant]
     Indication: ARTHRITIS
  4. XANAX [Concomitant]
  5. ZOLOFT [Concomitant]
  6. ZOCOR [Concomitant]
     Indication: BLOOD CHOLESTEROL INCREASED

REACTIONS (3)
  - BLOOD CHOLESTEROL INCREASED [None]
  - SOMNOLENCE [None]
  - WEIGHT INCREASED [None]
